FAERS Safety Report 13049471 (Version 5)
Quarter: 2017Q1

REPORT INFORMATION
  Report Type: Report from Study
  Country: US (occurrence: US)
  Receive Date: 20161221
  Receipt Date: 20170202
  Transmission Date: 20170428
  Serious: Yes (Hospitalization, Other)
  Sender: FDA-Public Use
  Company Number: US-BRISTOL-MYERS SQUIBB COMPANY-BMS-2016-092464

PATIENT
  Age: 71 Year
  Sex: Male

DRUGS (5)
  1. 5-AZACYTIDINE [Suspect]
     Active Substance: AZACITIDINE
     Indication: PRODUCT USED FOR UNKNOWN INDICATION
     Dosage: 75 MG/M2, QWK
     Route: 042
     Dates: start: 20161129
  2. 5-AZACYTIDINE [Suspect]
     Active Substance: AZACITIDINE
     Indication: MYELOID LEUKAEMIA
     Dosage: 75 MG/M2, QWK
     Route: 042
     Dates: start: 20161028
  3. NIVOLUMAB [Suspect]
     Active Substance: NIVOLUMAB
     Indication: PRODUCT USED FOR UNKNOWN INDICATION
     Dosage: 3 MG/KG, Q2WK
     Route: 065
     Dates: start: 20161129
  4. 5-AZACYTIDINE [Suspect]
     Active Substance: AZACITIDINE
     Indication: PRODUCT USED FOR UNKNOWN INDICATION
     Dosage: 75 MG/KG, UNK
     Route: 042
     Dates: start: 20161205
  5. NIVOLUMAB [Suspect]
     Active Substance: NIVOLUMAB
     Indication: MYELOID LEUKAEMIA
     Dosage: 3 MG/KG, Q2WK
     Route: 065
     Dates: start: 20161028, end: 20161028

REACTIONS (4)
  - Pyrexia [Unknown]
  - Lung infection [Unknown]
  - Febrile neutropenia [Unknown]
  - Infection [Recovered/Resolved]

NARRATIVE: CASE EVENT DATE: 20161029
